FAERS Safety Report 12553411 (Version 1)
Quarter: 2016Q3

REPORT INFORMATION
  Report Type: Report from Study
  Country: GB (occurrence: GB)
  Receive Date: 20160713
  Receipt Date: 20160713
  Transmission Date: 20161109
  Serious: Yes (Death)
  Sender: FDA-Public Use
  Company Number: GB-PFIZER INC-2016335420

PATIENT
  Age: 78 Year
  Sex: Female

DRUGS (9)
  1. PREDNISOLONE. [Concomitant]
     Active Substance: PREDNISOLONE
     Dosage: UNK
     Route: 054
  2. ONDANSETRON [Concomitant]
     Active Substance: ONDANSETRON
     Dosage: UNK
     Route: 048
  3. BOSUTINIB [Suspect]
     Active Substance: BOSUTINIB
     Dosage: 200 MG, DAILY
     Dates: start: 20140522
  4. BOSUTINIB [Suspect]
     Active Substance: BOSUTINIB
     Indication: CHRONIC MYELOID LEUKAEMIA
     Dosage: 100 MG, UNK
     Dates: start: 20130313, end: 20130704
  5. BOSUTINIB [Suspect]
     Active Substance: BOSUTINIB
     Dosage: 200 MG, UNK
     Dates: start: 20130704, end: 20130904
  6. BOSUTINIB [Suspect]
     Active Substance: BOSUTINIB
     Dosage: 150 MG, UNK
     Dates: start: 20140508, end: 20140522
  7. BOSUTINIB [Suspect]
     Active Substance: BOSUTINIB
     Dosage: 150 MG, UNK
     Dates: start: 20140411, end: 20140501
  8. BOSUTINIB [Suspect]
     Active Substance: BOSUTINIB
     Dosage: 150 MG, UNK
     Dates: start: 20130904, end: 20140404
  9. BOSUTINIB [Suspect]
     Active Substance: BOSUTINIB
     Dosage: 200 MG, UNK
     Dates: start: 20140501, end: 20140508

REACTIONS (1)
  - Death [Fatal]

NARRATIVE: CASE EVENT DATE: 20141006
